FAERS Safety Report 11885190 (Version 3)
Quarter: 2016Q1

REPORT INFORMATION
  Report Type: Spontaneous
  Country: DE (occurrence: DE)
  Receive Date: 20160104
  Receipt Date: 20160209
  Transmission Date: 20160526
  Serious: Yes (Other)
  Sender: FDA-Public Use
  Company Number: PHHY2015DE171129

PATIENT
  Sex: Male

DRUGS (4)
  1. VOTRIENT [Suspect]
     Active Substance: PAZOPANIB HYDROCHLORIDE
     Indication: METASTASES TO LUNG
     Dosage: 200 MG, QD
     Route: 065
     Dates: start: 201601
  2. IODINE [Concomitant]
     Active Substance: IODINE
     Indication: PRODUCT USED FOR UNKNOWN INDICATION
     Route: 065
  3. VOTRIENT [Suspect]
     Active Substance: PAZOPANIB HYDROCHLORIDE
     Indication: RENAL CANCER
     Dosage: 400 MG, BID
     Route: 065
     Dates: start: 20150813
  4. EUTHYROX [Suspect]
     Active Substance: LEVOTHYROXINE SODIUM
     Indication: PRODUCT USED FOR UNKNOWN INDICATION
     Dosage: 125 UG, QD
     Route: 065
     Dates: start: 2000

REACTIONS (9)
  - Cerebral infarction [Recovered/Resolved]
  - Hemiplegia [Recovered/Resolved]
  - Hypoaesthesia oral [Recovered/Resolved]
  - Speech disorder [Recovered/Resolved]
  - Weight increased [Recovering/Resolving]
  - Muscle spasms [Recovered/Resolved]
  - Diarrhoea [Recovering/Resolving]
  - Hemiplegia [Unknown]
  - Decreased appetite [Recovering/Resolving]
